FAERS Safety Report 10396161 (Version 1)
Quarter: 2014Q1

REPORT INFORMATION
  Report Type: Spontaneous
  Country: US (occurrence: None)
  Receive Date: 20130805
  Receipt Date: 20130805
  Transmission Date: 20141002
  Serious: Yes (Other)
  Sender: FDA-Public Use
  Company Number: 2012MA013242

PATIENT
  Age: 50 Year
  Sex: Male

DRUGS (6)
  1. KADIAN (MORPHINE SULFATE EXTENDED-RELEASE) CAPSULES 100MG (AELLC) [Suspect]
     Indication: PAIN
     Route: 048
     Dates: start: 20121025
  2. KLONOPIN [Concomitant]
  3. XANAX [Concomitant]
  4. PERCOCET [Concomitant]
  5. OXYCODONE [Concomitant]
  6. MS CONTIN [Concomitant]

REACTIONS (5)
  - Drug ineffective [None]
  - Hyperhidrosis [None]
  - Nightmare [None]
  - Medication residue present [None]
  - Withdrawal syndrome [None]
